FAERS Safety Report 18180381 (Version 1)
Quarter: 2020Q3

REPORT INFORMATION
  Report Type: Spontaneous
  Country: US (occurrence: US)
  Receive Date: 20200821
  Receipt Date: 20200821
  Transmission Date: 20201103
  Serious: Yes (Death)
  Sender: FDA-Public Use
  Company Number: None

PATIENT
  Age: 64 Year
  Sex: Female

DRUGS (1)
  1. AXICABTAGENE CILOLEUCEL [Suspect]
     Active Substance: AXICABTAGENE CILOLEUCEL
     Indication: DIFFUSE LARGE B-CELL LYMPHOMA REFRACTORY
     Dosage: ?          OTHER FREQUENCY:ONCE;?
     Route: 040
     Dates: start: 20200304, end: 20200304

REACTIONS (13)
  - Haemodynamic instability [None]
  - Gastrointestinal haemorrhage [None]
  - Tumour invasion [None]
  - Acute respiratory distress syndrome [None]
  - Tachycardia [None]
  - Oxygen saturation decreased [None]
  - Pleural effusion [None]
  - Hypoxia [None]
  - Nervous system disorder [None]
  - Pyrexia [None]
  - Pneumonia [None]
  - Cytokine release syndrome [None]
  - Confusional state [None]

NARRATIVE: CASE EVENT DATE: 20200312
